FAERS Safety Report 4790322-7 (Version None)
Quarter: 2005Q4

REPORT INFORMATION
  Report Type: 
  Country: None (occurrence: None)
  Receive Date: 20051005
  Receipt Date: 20051005
  Transmission Date: 20060501
  Serious: Yes (Hospitalization)
  Sender: FDA-Public Use
  Company Number: None

PATIENT
  Sex: Male
  Weight: 64 kg

DRUGS (13)
  1. PHENYTOIN [Suspect]
     Indication: CONVULSION
     Dosage: 300 MG IV Q 12 HRS
     Route: 042
     Dates: start: 20040301
  2. TPN [Concomitant]
  3. HYDROMORPHONE [Concomitant]
  4. MORPHINE [Concomitant]
  5. TEMAZEPAM [Concomitant]
  6. DIPHENOXYTATE/ATROPINE [Concomitant]
  7. G-CSF [Concomitant]
  8. ZOFRAN [Concomitant]
  9. AMLODIPINE [Concomitant]
  10. CLONIDINE [Concomitant]
  11. DEXAMETHASONE [Concomitant]
  12. ENOXAPARIN SODIUM [Concomitant]
  13. REGLAN [Concomitant]

REACTIONS (3)
  - BLOOD ALBUMIN DECREASED [None]
  - DYSPNOEA [None]
  - MENTAL STATUS CHANGES [None]
